FAERS Safety Report 13747953 (Version 1)
Quarter: 2017Q3

REPORT INFORMATION
  Report Type: Spontaneous
  Country: US (occurrence: US)
  Receive Date: 20170713
  Receipt Date: 20170713
  Transmission Date: 20171127
  Serious: Yes (Disabling, Other)
  Sender: FDA-Public Use
  Company Number: US-ROCHE-1954618

PATIENT
  Age: 69 Year
  Sex: Male
  Weight: 72.19 kg

DRUGS (1)
  1. ESBRIET [Suspect]
     Active Substance: PIRFENIDONE
     Indication: PRODUCT USED FOR UNKNOWN INDICATION
     Route: 048

REACTIONS (4)
  - Ocular hyperaemia [Unknown]
  - Penile discharge [Unknown]
  - Arthritis [Unknown]
  - Eye discharge [Unknown]

NARRATIVE: CASE EVENT DATE: 20170621
